FAERS Safety Report 4330953-1 (Version None)
Quarter: 2004Q1

REPORT INFORMATION
  Report Type: 
  Country: None (occurrence: None)
  Receive Date: 20040329
  Receipt Date: 20040305
  Transmission Date: 20041129
  Serious: Yes (Hospitalization, Disabling)
  Sender: FDA-Public Use
  Company Number: PHNU2004DE01127

PATIENT
  Sex: Male
  Weight: 95 kg

DRUGS (3)
  1. SANDIMMUNE [Suspect]
     Indication: RENAL TRANSPLANT
     Dosage: 175MG/DAY, ORAL
     Route: 048
     Dates: start: 20000504, end: 20030205
  2. DECORTIN TABLET [Concomitant]
  3. CELLCEPT [Concomitant]

REACTIONS (9)
  - AMPUTATION [None]
  - CORONARY ARTERY DISEASE [None]
  - DIALYSIS [None]
  - ESCHERICHIA URINARY TRACT INFECTION [None]
  - FOOT AMPUTATION [None]
  - MYOCARDIAL INFARCTION [None]
  - PNEUMONIA [None]
  - RENAL FAILURE ACUTE [None]
  - UROSEPSIS [None]
